FAERS Safety Report 24836891 (Version 1)
Quarter: 2025Q1

REPORT INFORMATION
  Report Type: Spontaneous
  Country: FR (occurrence: FR)
  Receive Date: 20250113
  Receipt Date: 20250113
  Transmission Date: 20250408
  Serious: Yes (Hospitalization)
  Sender: MYLAN
  Company Number: None

PATIENT
  Age: 74 Year
  Sex: Male

DRUGS (4)
  1. GABAPENTIN [Suspect]
     Active Substance: GABAPENTIN
     Indication: Post herpetic neuralgia
     Dosage: 600 MILLIGRAM, QD (600 MG/DAY )
     Route: 048
     Dates: start: 20241125, end: 20241205
  2. BACTRIM [Suspect]
     Active Substance: SULFAMETHOXAZOLE\TRIMETHOPRIM
     Indication: Urinary tract infection
     Dosage: 4 DOSAGE FORM, QD (2 TABLETS EVERY 12 HOURS)
     Route: 048
     Dates: start: 20241123, end: 20241205
  3. ISOTRETINOIN [Suspect]
     Active Substance: ISOTRETINOIN
     Indication: Acne
     Route: 048
     Dates: start: 20241123, end: 20241205
  4. COLCHICINE [Suspect]
     Active Substance: COLCHICINE
     Indication: Gout
     Dosage: 1 MILLIGRAM, QD (1 MG/DAY )
     Route: 048
     Dates: start: 202411, end: 20241205

REACTIONS (4)
  - Hepatic cytolysis [Recovered/Resolved]
  - C-reactive protein increased [Recovered/Resolved]
  - Acute kidney injury [Recovered/Resolved]
  - Rash maculo-papular [Recovered/Resolved]

NARRATIVE: CASE EVENT DATE: 20241204
